FAERS Safety Report 25346584 (Version 1)
Quarter: 2025Q2

REPORT INFORMATION
  Report Type: Spontaneous
  Country: CN (occurrence: CN)
  Receive Date: 20250522
  Receipt Date: 20250522
  Transmission Date: 20250717
  Serious: Yes (Other)
  Sender: NOVARTIS
  Company Number: CN-002147023-NVSC2025CN080222

PATIENT
  Age: 16 Year
  Sex: Male

DRUGS (1)
  1. CARBAMAZEPINE [Suspect]
     Active Substance: CARBAMAZEPINE
     Indication: Epilepsy
     Dosage: 600 MG, BID
     Route: 048
     Dates: start: 20250414, end: 20250416

REACTIONS (8)
  - Loss of consciousness [Recovered/Resolved]
  - Somnolence [Unknown]
  - Blood pressure abnormal [Unknown]
  - Dizziness [Recovering/Resolving]
  - Extensor plantar response [Unknown]
  - Nausea [Unknown]
  - Vomiting [Recovered/Resolved]
  - Dysphonia [Unknown]

NARRATIVE: CASE EVENT DATE: 20250416
